FAERS Safety Report 18856475 (Version 2)
Quarter: 2021Q2

REPORT INFORMATION
  Report Type: Spontaneous
  Country: JP (occurrence: JP)
  Receive Date: 20210207
  Receipt Date: 20210415
  Transmission Date: 20210717
  Serious: Yes (Hospitalization)
  Sender: FDA-Public Use
  Company Number: JP-AMGEN-JPNSP2021018311

PATIENT
  Age: 73 Year
  Sex: Female
  Weight: 62 kg

DRUGS (15)
  1. VELCADE [Concomitant]
     Active Substance: BORTEZOMIB
     Indication: PLASMA CELL MYELOMA
     Dosage: 1.98 MG, QD
     Route: 065
     Dates: start: 20210104
  2. EDIROL [Concomitant]
     Active Substance: ELDECALCITOL
     Indication: PLASMA CELL MYELOMA
     Dosage: 0.75 UG, QD
     Route: 065
     Dates: start: 20210104
  3. FLUCONAZOLE. [Concomitant]
     Active Substance: FLUCONAZOLE
     Indication: PLASMA CELL MYELOMA
     Dosage: 100 MG, QD
     Route: 065
     Dates: start: 20210104
  4. EDIROL [Concomitant]
     Active Substance: ELDECALCITOL
     Indication: BONE LESION
  5. ENDOXAN [CYCLOPHOSPHAMIDE] [Concomitant]
     Active Substance: CYCLOPHOSPHAMIDE
     Indication: PLASMA CELL MYELOMA
     Dosage: 50 MG, QD
     Route: 065
     Dates: start: 20210104
  6. ELIQUIS [Concomitant]
     Active Substance: APIXABAN
     Indication: PLASMA CELL MYELOMA
     Dosage: 5 MG, QD
     Route: 065
     Dates: start: 20210104
  7. RANMARK [Suspect]
     Active Substance: DENOSUMAB
     Indication: PLASMA CELL MYELOMA
     Dosage: 120 MILLIGRAM, Q4WK
     Route: 058
     Dates: start: 20210104
  8. GLAKAY [Concomitant]
     Active Substance: MENATETRENONE
     Indication: PLASMA CELL MYELOMA
     Dosage: 30 MG, BID
     Route: 065
     Dates: start: 20210104
  9. RANMARK [Suspect]
     Active Substance: DENOSUMAB
     Indication: PLASMA CELL MYELOMA
     Dosage: 120 MILLIGRAM, Q4WK
     Route: 058
  10. FAMOTIDINE. [Concomitant]
     Active Substance: FAMOTIDINE
     Indication: PLASMA CELL MYELOMA
     Dosage: 20 MG, BID
     Route: 065
     Dates: start: 20210104
  11. RANMARK [Suspect]
     Active Substance: DENOSUMAB
     Indication: METASTASES TO BONE
     Dosage: UNK
     Route: 058
  12. ZOVIRAX [Concomitant]
     Active Substance: ACYCLOVIR
     Indication: PLASMA CELL MYELOMA
     Dosage: 200 MILLIGRAM, QD
     Route: 065
     Dates: start: 20210104
  13. DAIPHEN [Concomitant]
     Active Substance: SULFAMETHOXAZOLE\TRIMETHOPRIM
     Indication: PLASMA CELL MYELOMA
     Dosage: 0.5 DF, QD
     Route: 065
     Dates: start: 20210104
  14. TEPRENONE [Concomitant]
     Active Substance: TEPRENONE
     Indication: PLASMA CELL MYELOMA
     Dosage: 100 MG, BID
     Route: 065
     Dates: start: 20210104
  15. LENADEX [Concomitant]
     Active Substance: DEXAMETHASONE ACETATE
     Indication: PLASMA CELL MYELOMA
     Dosage: 8 MG, QD
     Route: 065
     Dates: start: 20210104

REACTIONS (2)
  - Atypical femur fracture [Recovering/Resolving]
  - Fall [Unknown]

NARRATIVE: CASE EVENT DATE: 20210116
